FAERS Safety Report 9349050 (Version 1)
Quarter: 2013Q2

REPORT INFORMATION
  Report Type: Report from Study
  Country: GB (occurrence: GB)
  Receive Date: 20130614
  Receipt Date: 20130614
  Transmission Date: 20140414
  Serious: Yes (Hospitalization)
  Sender: FDA-Public Use
  Company Number: GB-JNJFOC-20130604221

PATIENT
  Age: 44 Year
  Sex: Male
  Weight: 117 kg

DRUGS (6)
  1. USTEKINUMAB [Suspect]
     Indication: PSORIASIS
     Route: 058
     Dates: start: 20111027
  2. TRAMADOL [Concomitant]
     Dates: start: 20120114
  3. AMITRIPTYLINE [Concomitant]
     Dates: start: 20120715
  4. DIHYDROCODEINE [Concomitant]
     Dates: start: 20120715
  5. NAPROXEN [Concomitant]
     Dates: start: 20120715
  6. FUMARIC ACID [Concomitant]
     Dates: start: 20110327

REACTIONS (1)
  - Anal abscess [Not Recovered/Not Resolved]
